FAERS Safety Report 17254700 (Version 2)
Quarter: 2020Q1

REPORT INFORMATION
  Report Type: Report from Study
  Country: US (occurrence: US)
  Receive Date: 20200109
  Receipt Date: 20200114
  Transmission Date: 20200409
  Serious: Yes (Death)
  Sender: FDA-Public Use
  Company Number: NVSC2020US003389

PATIENT
  Sex: Male
  Weight: 70.9 kg

DRUGS (2)
  1. LAMPRENE [Suspect]
     Active Substance: CLOFAZIMINE
     Indication: MYCOBACTERIAL INFECTION
     Dosage: 100 MG, QD
     Route: 048
     Dates: start: 20190814, end: 20191123
  2. LAMPRENE [Suspect]
     Active Substance: CLOFAZIMINE
     Indication: ENCEPHALITIS BRAIN STEM

REACTIONS (3)
  - Mycobacterial infection [Fatal]
  - Encephalitis brain stem [Fatal]
  - Disease progression [Fatal]
